FAERS Safety Report 24913350 (Version 1)
Quarter: 2025Q1

REPORT INFORMATION
  Report Type: Spontaneous
  Country: US (occurrence: US)
  Receive Date: 20250201
  Receipt Date: 20250201
  Transmission Date: 20250409
  Serious: No
  Sender: MERCK
  Company Number: US-009507513-2501USA009788

PATIENT
  Sex: Female
  Weight: 62.9 kg

DRUGS (10)
  1. WINREVAIR [Suspect]
     Active Substance: SOTATERCEPT-CSRK
  2. FAMOTIDINE [Concomitant]
     Active Substance: FAMOTIDINE
  3. VITAMINS [Concomitant]
     Active Substance: VITAMINS
  4. AVIANE [Concomitant]
     Active Substance: ETHINYL ESTRADIOL\LEVONORGESTREL
  5. TADALAFIL [Concomitant]
     Active Substance: TADALAFIL
  6. SPIRONOLACTONE [Concomitant]
     Active Substance: SPIRONOLACTONE
  7. OXYGEN [Concomitant]
     Active Substance: OXYGEN
  8. AMBRISENTAN [Concomitant]
     Active Substance: AMBRISENTAN
  9. TORSEMIDE [Concomitant]
     Active Substance: TORSEMIDE
  10. REMODULIN [Concomitant]
     Active Substance: TREPROSTINIL
     Indication: Pulmonary arterial hypertension
     Route: 058
     Dates: start: 20240716

REACTIONS (2)
  - Haematocrit increased [Unknown]
  - Haemoglobin increased [Unknown]
